FAERS Safety Report 21610112 (Version 1)
Quarter: 2022Q4

REPORT INFORMATION
  Report Type: Spontaneous
  Country: RU (occurrence: RU)
  Receive Date: 20221117
  Receipt Date: 20221117
  Transmission Date: 20230113
  Serious: Yes (Hospitalization)
  Sender: FDA-Public Use
  Company Number: RU-VERTEX PHARMACEUTICALS-2022-017048

PATIENT
  Sex: Female
  Weight: 56 kg

DRUGS (2)
  1. TRIKAFTA [Suspect]
     Active Substance: ELEXACAFTOR\IVACAFTOR\TEZACAFTOR
     Indication: Cystic fibrosis
     Dosage: 2 TABS AM, 1 TAB PM
     Route: 048
     Dates: start: 20211130
  2. DORNASE ALFA [Concomitant]
     Active Substance: DORNASE ALFA
     Indication: COVID-19
     Dosage: DOSE DOUBLED

REACTIONS (9)
  - Hospitalisation [Unknown]
  - COVID-19 [Recovered/Resolved]
  - Haemoptysis [Unknown]
  - Staphylococcus test positive [Unknown]
  - Pneumonia viral [Unknown]
  - Viral infection [Unknown]
  - Clubbing [Unknown]
  - Acne pustular [Unknown]
  - Acne [Unknown]

NARRATIVE: CASE EVENT DATE: 20220101
